FAERS Safety Report 9345941 (Version 2)
Quarter: 2013Q2

REPORT INFORMATION
  Report Type: Spontaneous
  Country: US (occurrence: US)
  Receive Date: 20130613
  Receipt Date: 20130627
  Transmission Date: 20140414
  Serious: No
  Sender: FDA-Public Use
  Company Number: US-BAYER-2013-071341

PATIENT
  Age: 61 Year
  Sex: Male

DRUGS (4)
  1. STAXYN (FDT/ODT) [Suspect]
     Indication: ERECTILE DYSFUNCTION
     Dosage: 10 MG, UNK
     Route: 048
     Dates: end: 20130608
  2. MUCINEX [Concomitant]
  3. PRILOSEC [Concomitant]
     Indication: DYSPEPSIA
  4. ALBUTEROL [Concomitant]
     Indication: ASTHMA

REACTIONS (1)
  - Drug ineffective [None]
